FAERS Safety Report 8162406-7 (Version None)
Quarter: 2012Q1

REPORT INFORMATION
  Report Type: 
  Country: None (occurrence: None)
  Receive Date: 20120224
  Receipt Date: 20120214
  Transmission Date: 20120608
  Serious: Yes (Hospitalization, Other)
  Sender: FDA-Public Use
  Company Number: US-ELI_LILLY_AND_COMPANY-US201109000384

PATIENT
  Sex: Female

DRUGS (12)
  1. FORTEO [Suspect]
     Dosage: 20 UG, QD
     Route: 058
  2. GABAPENTIN [Concomitant]
  3. TRAZODONE HCL [Concomitant]
  4. FORTEO [Suspect]
     Indication: OSTEOPOROSIS
     Dosage: 20 UG, QD
     Route: 058
  5. ROPINIROLE [Concomitant]
  6. CALCIUM [Concomitant]
  7. FORTEO [Suspect]
     Dosage: 20 UG, QD
     Route: 058
  8. IBUPROFEN [Concomitant]
     Indication: ULCER
     Dosage: UNK, QD
  9. VITAMIN B-12 [Concomitant]
  10. POTASSIUM CHLORIDE [Concomitant]
  11. FLAXSEED OIL [Concomitant]
  12. IBUPROFEN [Concomitant]
     Dosage: UNK, QOD

REACTIONS (6)
  - LOSS OF CONSCIOUSNESS [None]
  - MEMORY IMPAIRMENT [None]
  - ELECTROLYTE IMBALANCE [None]
  - GENERAL PHYSICAL HEALTH DETERIORATION [None]
  - ASTHENIA [None]
  - NAUSEA [None]
